FAERS Safety Report 6511886-9 (Version None)
Quarter: 2009Q4

REPORT INFORMATION
  Report Type: 
  Country: None (occurrence: None)
  Receive Date: 20091222
  Receipt Date: 20090803
  Transmission Date: 20100525
  Serious: No
  Sender: FDA-Public Use
  Company Number: US-ASTRAZENECA-2009UW16770

PATIENT
  Age: 59 Year
  Sex: Male

DRUGS (7)
  1. CRESTOR [Suspect]
     Dosage: 10 MG
     Route: 048
  2. CRESTOR [Suspect]
     Dosage: 5 MG
     Route: 048
  3. ZOCOR [Suspect]
     Route: 048
  4. BABY ASPIRIN [Concomitant]
  5. HYDROCHLOROTHIAZIDE [Concomitant]
  6. BENAZEPRIL HYDROCHLORIDE [Concomitant]
     Indication: BLOOD PRESSURE
  7. PROVIGIL [Concomitant]
     Indication: OBSESSIVE-COMPULSIVE DISORDER

REACTIONS (3)
  - BACK PAIN [None]
  - FLANK PAIN [None]
  - INFLUENZA LIKE ILLNESS [None]
